FAERS Safety Report 6614229-5 (Version None)
Quarter: 2010Q1

REPORT INFORMATION
  Report Type: 
  Country: None (occurrence: None)
  Receive Date: 20100304
  Receipt Date: 20100222
  Transmission Date: 20100710
  Serious: Yes (Hospitalization, Other)
  Sender: FDA-Public Use
  Company Number: BR-ABBOTT-09P-020-0594017-00

PATIENT
  Sex: Female
  Weight: 75 kg

DRUGS (14)
  1. HUMIRA [Suspect]
     Indication: RHEUMATOID ARTHRITIS
     Route: 058
  2. METHOTREXATE [Concomitant]
     Indication: RHEUMATOID ARTHRITIS
     Route: 048
  3. UNKNOWN ANTI-DEPRESSANT [Concomitant]
     Indication: DRUG USE FOR UNKNOWN INDICATION
  4. ETODOLAC [Concomitant]
     Indication: RHEUMATOID ARTHRITIS
     Route: 048
  5. WARFARIN SODIUM [Concomitant]
     Indication: THROMBOSIS
     Route: 048
     Dates: start: 19970101
  6. ENALAPRIL MALEATE [Concomitant]
     Indication: BLOOD PRESSURE
     Route: 048
     Dates: start: 19970101
  7. GINKGO BILOBA [Concomitant]
     Indication: LABYRINTHITIS
     Route: 048
  8. TAMUSSIVALID [Concomitant]
     Indication: BLOOD CHOLESTEROL ABNORMAL
     Route: 048
  9. SIMVASTATIN [Concomitant]
     Indication: BLOOD CHOLESTEROL ABNORMAL
     Route: 048
  10. METOPROLOL TARTRATE [Concomitant]
     Indication: CARDIAC DISORDER
     Route: 048
  11. AMLODIPINE [Concomitant]
     Indication: BLOOD PRESSURE
     Route: 048
  12. MIOFLEX [Concomitant]
     Indication: PAIN
     Dosage: 150MG/75MG/300MG ONCE DAILY
     Route: 048
  13. SERTRALINE HCL [Concomitant]
     Indication: DEPRESSION
     Route: 048
  14. CLONAZEPAM [Concomitant]
     Indication: SLEEP DISORDER THERAPY
     Route: 048

REACTIONS (9)
  - ARTHROPATHY [None]
  - AURICULAR SWELLING [None]
  - EAR INFECTION [None]
  - EAR PAIN [None]
  - HYPOACUSIS [None]
  - KNEE OPERATION [None]
  - MEDICAL DEVICE IMPLANTATION [None]
  - PAIN [None]
  - WEIGHT DECREASED [None]
